FAERS Safety Report 18318098 (Version 5)
Quarter: 2021Q2

REPORT INFORMATION
  Report Type: Spontaneous
  Country: US (occurrence: US)
  Receive Date: 20200928
  Receipt Date: 20210426
  Transmission Date: 20210717
  Serious: No
  Sender: FDA-Public Use
  Company Number: US-PFIZER INC-2020369356

PATIENT
  Age: 14 Year
  Sex: Female
  Weight: 91.9 kg

DRUGS (5)
  1. RUXIENCE [Suspect]
     Active Substance: RITUXIMAB-PVVR
     Indication: JUVENILE IDIOPATHIC ARTHRITIS
     Dosage: 1000 MG, (1000MG ONCE)
     Route: 042
     Dates: start: 20200921, end: 20200921
  2. PREDNISOLONE. [Concomitant]
     Active Substance: PREDNISOLONE
     Dosage: 20 MG, 1X/DAY
     Dates: start: 20200824
  3. MELOXICAM. [Concomitant]
     Active Substance: MELOXICAM
     Dosage: 7.5 MG, 1X/DAY
     Dates: start: 20200604
  4. RUXIENCE [Suspect]
     Active Substance: RITUXIMAB-PVVR
     Indication: RHEUMATIC DISORDER
     Dosage: UNK (DOSE UNKNOWN, BY INFUSION); (BETWEEN 300?600MG)
     Route: 042
  5. FOLIC ACID. [Concomitant]
     Active Substance: FOLIC ACID
     Dosage: 1 MG, 1X/DAY
     Dates: start: 20181120

REACTIONS (6)
  - Off label use [Unknown]
  - Inflammation [Unknown]
  - Cough [Recovered/Resolved]
  - Throat irritation [Recovered/Resolved]
  - Dry throat [Unknown]
  - Enzyme level decreased [Unknown]

NARRATIVE: CASE EVENT DATE: 202009
